FAERS Safety Report 6445433-7 (Version None)
Quarter: 2009Q4

REPORT INFORMATION
  Report Type: 
  Country: None (occurrence: None)
  Receive Date: 20091118
  Receipt Date: 20091112
  Transmission Date: 20100525
  Serious: Yes (Death, Hospitalization)
  Sender: FDA-Public Use
  Company Number: PHHO2009FR14125

PATIENT

DRUGS (5)
  1. RAD 666 RAD+TAB [Suspect]
     Indication: RENAL CANCER METASTATIC
     Dosage: UNK
     Dates: start: 20090112, end: 20090415
  2. CORTANCYL [Concomitant]
  3. BACTRIM [Concomitant]
  4. ZELITREX [Concomitant]
  5. RADIOTHERAPY [Concomitant]

REACTIONS (15)
  - ASTHENIA [None]
  - ATELECTASIS [None]
  - BRAIN COMPRESSION [None]
  - CREPITATIONS [None]
  - DEATH [None]
  - DYSPNOEA [None]
  - EPIDURITIS [None]
  - HEPATOMEGALY [None]
  - HYPERKALAEMIA [None]
  - HYPOCHLORAEMIA [None]
  - HYPONATRAEMIA [None]
  - PYREXIA [None]
  - RENAL FAILURE ACUTE [None]
  - RESPIRATORY DISTRESS [None]
  - SPINAL LAMINECTOMY [None]
